FAERS Safety Report 16826603 (Version 1)
Quarter: 2019Q3

REPORT INFORMATION
  Report Type: Spontaneous
  Country: US (occurrence: US)
  Receive Date: 20190727
  Receipt Date: 20190727
  Transmission Date: 20191005
  Serious: Yes (Hospitalization)
  Sender: FDA-Public Use
  Company Number: None

PATIENT
  Age: 46 Year
  Sex: Male
  Weight: 79.8 kg

DRUGS (1)
  1. ONCASPAR [Suspect]
     Active Substance: PEGASPARGASE
     Dosage: ?          OTHER DOSE:3750 UNIT;?
     Dates: end: 20190707

REACTIONS (2)
  - Hypertriglyceridaemia [None]
  - Abdominal pain [None]

NARRATIVE: CASE EVENT DATE: 20190722
